FAERS Safety Report 5417878-5 (Version None)
Quarter: 2007Q3

REPORT INFORMATION
  Report Type: 
  Country: None (occurrence: None)
  Receive Date: 20070815
  Receipt Date: 20070803
  Transmission Date: 20080115
  Serious: Yes (Other)
  Sender: FDA-Public Use
  Company Number: GXKR2007GB06658

PATIENT
  Age: 84 Year
  Sex: Female

DRUGS (1)
  1. ACETYLSALICYLIC ACID (NGX) (ACETYLSALICYLIC ACID) UNKOWN [Suspect]
     Dosage: 75 MG DAILY

REACTIONS (1)
  - POST PROCEDURAL HAEMORRHAGE [None]
